FAERS Safety Report 4714854-2 (Version None)
Quarter: 2005Q3

REPORT INFORMATION
  Report Type: 
  Country: None (occurrence: None)
  Receive Date: 20050715
  Receipt Date: 20050627
  Transmission Date: 20060218
  Serious: Yes (Congenital Anomaly, Other)
  Sender: FDA-Public Use
  Company Number: IE-BRISTOL-MYERS SQUIBB COMPANY-13020557

PATIENT
  Sex: Male

DRUGS (3)
  1. GLUCOPHAGE [Suspect]
     Route: 064
  2. CLOMID [Suspect]
     Route: 064
  3. PROGESTERONE [Suspect]
     Route: 064

REACTIONS (6)
  - CONGENITAL ANOMALY [None]
  - LIMB REDUCTION DEFECT [None]
  - NEONATAL DISORDER [None]
  - PHALANGEAL AGENESIS [None]
  - PREGNANCY [None]
  - SYNDACTYLY [None]
